FAERS Safety Report 4784632-7 (Version None)
Quarter: 2005Q3

REPORT INFORMATION
  Report Type: 
  Country: None (occurrence: None)
  Receive Date: 20050928
  Receipt Date: 20050914
  Transmission Date: 20060218
  Serious: Yes (Hospitalization)
  Sender: FDA-Public Use
  Company Number: USA0509108239

PATIENT
  Age: 85 Year
  Sex: Female

DRUGS (7)
  1. FORTEO [Suspect]
     Dosage: 20 UG DAY
     Dates: start: 20050601
  2. AVAPRO [Concomitant]
  3. ASPIRIN [Concomitant]
  4. TUMS (CALCIUM CARBONATE) [Concomitant]
  5. PLAQUENIL [Concomitant]
  6. METHOTREXATE /00113802/(METHOTREXATE SODIUM) [Concomitant]
  7. FOLIC ACID [Concomitant]

REACTIONS (5)
  - ANAEMIA [None]
  - HAEMATOCHEZIA [None]
  - MEDICAL DEVICE COMPLICATION [None]
  - PHARMACEUTICAL PRODUCT COMPLAINT [None]
  - URINARY TRACT INFECTION [None]
